FAERS Safety Report 6454317-X (Version None)
Quarter: 2009Q4

REPORT INFORMATION
  Report Type: 
  Country: None (occurrence: None)
  Receive Date: 20091124
  Receipt Date: 20091113
  Transmission Date: 20100525
  Serious: Yes (Other)
  Sender: FDA-Public Use
  Company Number: US-CELGENEUS-163-CCAZA-09111465

PATIENT
  Age: 50 Year
  Sex: Male

DRUGS (2)
  1. VIDAZA [Suspect]
     Route: 065
  2. VORINOSTAT [Concomitant]
     Route: 065

REACTIONS (1)
  - ACUTE FEBRILE NEUTROPHILIC DERMATOSIS [None]
